FAERS Safety Report 22961558 (Version 3)
Quarter: 2023Q4

REPORT INFORMATION
  Report Type: Report from Study
  Country: CA (occurrence: CA)
  Receive Date: 20230920
  Receipt Date: 20231020
  Transmission Date: 20240110
  Serious: Yes (Hospitalization)
  Sender: FDA-Public Use
  Company Number: CA-IMMUNOGEN, INC.-CA-IMGN-23-00458

PATIENT
  Age: 64 Year
  Sex: Female
  Weight: 91.3 kg

DRUGS (8)
  1. MIRVETUXIMAB SORAVTANSINE [Suspect]
     Active Substance: MIRVETUXIMAB SORAVTANSINE
     Indication: Ovarian cancer
     Dosage: 6 MILLIGRAM/KILOGRAM
     Route: 042
     Dates: start: 20230803
  2. TYLENOL [Concomitant]
     Active Substance: ACETAMINOPHEN
     Indication: Abdominal pain
     Dosage: UNK, UNK
     Route: 065
     Dates: start: 20230620
  3. ACETAMINOPHEN\CAFFEINE\DIHYDROCODEINE BITARTRATE [Concomitant]
     Active Substance: ACETAMINOPHEN\CAFFEINE\DIHYDROCODEINE BITARTRATE
     Indication: Pain
     Dosage: UNK, UNK
     Route: 065
     Dates: start: 20230801
  4. POLYETHYLENE GLYCOL 3350 [Concomitant]
     Active Substance: POLYETHYLENE GLYCOL 3350
     Indication: Constipation
     Dosage: UNK, UNK
     Route: 065
     Dates: start: 20230714
  5. GABAPENTIN [Concomitant]
     Active Substance: GABAPENTIN
     Indication: Peripheral sensory neuropathy
     Dosage: UNK, UNK
     Route: 065
     Dates: start: 20220901
  6. FUROSEMIDE [Concomitant]
     Active Substance: FUROSEMIDE
     Indication: Localised oedema
     Dosage: UNK, UNK
     Route: 065
     Dates: start: 20220901
  7. CITALOPRAM [Concomitant]
     Active Substance: CITALOPRAM HYDROBROMIDE
     Indication: Depression
     Dosage: UNK, UNK
     Route: 065
     Dates: start: 20230201
  8. ONDANSETRON [Concomitant]
     Active Substance: ONDANSETRON
     Indication: Premedication
     Dosage: UNK, UNK
     Route: 065
     Dates: start: 20230803, end: 20230803

REACTIONS (1)
  - Hepatitis [Recovered/Resolved]

NARRATIVE: CASE EVENT DATE: 20230811
